FAERS Safety Report 14126343 (Version 1)
Quarter: 2017Q4

REPORT INFORMATION
  Report Type: Not Available
  Country: US (occurrence: US)
  Receive Date: 20171025
  Receipt Date: 20171025
  Transmission Date: 20180321
  Serious: No
  Sender: FDA-Public Use
  Company Number: US-NEUROCRINE BIOSCIENCES INC.-2017NBI01112

PATIENT
  Age: 62 Year
  Sex: Male

DRUGS (14)
  1. INGREZZA [Suspect]
     Active Substance: VALBENAZINE
     Indication: TARDIVE DYSKINESIA
     Route: 048
     Dates: start: 20170810, end: 20170831
  2. TAMSULOSIN [Concomitant]
     Active Substance: TAMSULOSIN
  3. BUSPIRONE [Concomitant]
     Active Substance: BUSPIRONE HYDROCHLORIDE
  4. LISINOPRIL. [Concomitant]
     Active Substance: LISINOPRIL
  5. TEGRETOL [Concomitant]
     Active Substance: CARBAMAZEPINE
  6. TRAZODONE [Concomitant]
     Active Substance: TRAZODONE HYDROCHLORIDE
  7. ASPIRIN. [Concomitant]
     Active Substance: ASPIRIN
  8. VESICARE [Concomitant]
     Active Substance: SOLIFENACIN SUCCINATE
  9. DONEPEZIL. [Concomitant]
     Active Substance: DONEPEZIL
  10. GABAPENTIN. [Concomitant]
     Active Substance: GABAPENTIN
  11. DIVALPROEX [Concomitant]
     Active Substance: DIVALPROEX SODIUM
  12. TOPIRAMATE. [Concomitant]
     Active Substance: TOPIRAMATE
  13. LOVASTATIN. [Concomitant]
     Active Substance: LOVASTATIN
  14. OMEPRAZOLE. [Concomitant]
     Active Substance: OMEPRAZOLE

REACTIONS (1)
  - Anxiety [Not Recovered/Not Resolved]

NARRATIVE: CASE EVENT DATE: 20170818
